FAERS Safety Report 6058230-1 (Version None)
Quarter: 2009Q1

REPORT INFORMATION
  Report Type: 
  Country: None (occurrence: None)
  Receive Date: 20090130
  Receipt Date: 20081219
  Transmission Date: 20090719
  Serious: Yes (Hospitalization)
  Sender: FDA-Public Use
  Company Number: US-PFIZER INC-2008091777

PATIENT
  Sex: Male
  Weight: 54.875 kg

DRUGS (16)
  1. BLINDED *VANCOMYCIN [Suspect]
     Indication: PNEUMONIA STAPHYLOCOCCAL
     Dosage: BID, Q 12 HOURS
     Route: 042
     Dates: start: 20080817, end: 20080827
  2. BLINDED LINEZOLID [Suspect]
     Indication: PNEUMONIA STAPHYLOCOCCAL
     Dosage: BID, Q 12 HOURS
     Route: 042
     Dates: start: 20080817, end: 20080827
  3. ACETYLSALICYLIC ACID SRT [Concomitant]
     Route: 048
  4. BACTROBAN [Concomitant]
     Route: 045
  5. CARAFATE [Concomitant]
     Route: 048
  6. COREG [Concomitant]
     Route: 048
  7. ISOSORBIDE DINITRATE [Concomitant]
     Route: 048
  8. LISINOPRIL [Concomitant]
     Route: 048
     Dates: end: 20080922
  9. CUMADIN [Concomitant]
     Route: 048
  10. MAGNESIUM HYDROXIDE TAB [Concomitant]
     Route: 048
     Dates: end: 20080922
  11. MIDODRINE [Concomitant]
     Route: 048
  12. NEPHROCAPS [Concomitant]
     Route: 048
  13. PHOSLO [Concomitant]
     Dosage: UNK
     Route: 048
     Dates: start: 20080821
  14. PLETAL [Concomitant]
     Route: 048
  15. LORTAB [Concomitant]
     Dosage: UNK
     Route: 048
     Dates: start: 20080825
  16. DURAGESIC-100 [Concomitant]
     Route: 062

REACTIONS (1)
  - PULMONARY OEDEMA [None]
